FAERS Safety Report 6035353-4 (Version None)
Quarter: 2009Q1

REPORT INFORMATION
  Report Type: 
  Country: None (occurrence: None)
  Receive Date: 20090109
  Receipt Date: 20090109
  Transmission Date: 20090719
  Serious: No
  Sender: FDA-Public Use
  Company Number: None

PATIENT
  Sex: Female
  Weight: 71.82 kg

DRUGS (4)
  1. LIPITOR [Suspect]
     Dosage: 20MG TABLET QHS
     Route: 048
     Dates: start: 20090108, end: 20090108
  2. AMBIEN [Concomitant]
  3. HALFLYTELY AND BISACODYL TABLETS (BISACODYL-PEG ELECTROLYTE SOLUTION) [Concomitant]
  4. SYNTHROID [Concomitant]

REACTIONS (1)
  - MYALGIA [None]
